FAERS Safety Report 5702506-1 (Version None)
Quarter: 2008Q2

REPORT INFORMATION
  Report Type: 
  Country: None (occurrence: None)
  Receive Date: 20080411
  Receipt Date: 20080402
  Transmission Date: 20081010
  Serious: Yes (Hospitalization)
  Sender: FDA-Public Use
  Company Number: SE-JNJFOC-20080401545

PATIENT
  Age: 56 Year
  Sex: Male

DRUGS (13)
  1. REMICADE [Suspect]
     Indication: ANKYLOSING SPONDYLITIS
     Route: 042
  2. EMGESAN [Concomitant]
  3. SALAZOPYRIN EN [Concomitant]
  4. PREDNISOLONE [Concomitant]
  5. CELEBRA [Concomitant]
  6. TENORMIN [Concomitant]
  7. KALCIPOS [Concomitant]
  8. OPTINATE SEPTIMUM [Concomitant]
  9. BEHEPAN [Concomitant]
     Route: 030
  10. LANSOPRAZOLE [Concomitant]
  11. PRIMODIUM [Concomitant]
  12. ACETAMINOPHEN [Concomitant]
  13. FOLACIN [Concomitant]

REACTIONS (1)
  - FACIAL PALSY [None]
